FAERS Safety Report 10647011 (Version 1)
Quarter: 2014Q4

REPORT INFORMATION
  Report Type: Spontaneous
  Country: US (occurrence: US)
  Receive Date: 20141211
  Receipt Date: 20141211
  Transmission Date: 20150529
  Serious: No
  Sender: FDA-Public Use
  Company Number: US-INCYTE CORPORATION-2014IN003020

PATIENT
  Sex: Female

DRUGS (12)
  1. ONDANSETRON [Concomitant]
     Active Substance: ONDANSETRON
  2. CENTRUM SILVER                     /07431401/ [Concomitant]
  3. AMLODIPINE [Concomitant]
     Active Substance: AMLODIPINE BESYLATE
  4. FENTANYL. [Concomitant]
     Active Substance: FENTANYL
  5. AMMONIUM LACTATE. [Concomitant]
     Active Substance: AMMONIUM LACTATE
  6. EXJADE [Concomitant]
     Active Substance: DEFERASIROX
  7. ADVIL [Concomitant]
     Active Substance: IBUPROFEN
  8. BENICAR [Concomitant]
     Active Substance: OLMESARTAN MEDOXOMIL
  9. JAKAFI [Suspect]
     Active Substance: RUXOLITINIB
     Dosage: 20 MG, BID
     Route: 048
     Dates: start: 20120312
  10. VICKS VAPORUB                      /00055801/ [Concomitant]
  11. METAXALONE. [Concomitant]
     Active Substance: METAXALONE
  12. PANTOPRAZOLE [Concomitant]
     Active Substance: PANTOPRAZOLE SODIUM

REACTIONS (5)
  - Blood iron increased [Unknown]
  - Transfusion [Unknown]
  - Diarrhoea [Unknown]
  - Arthritis [Unknown]
  - Pain [Unknown]
